FAERS Safety Report 14343565 (Version 2)
Quarter: 2018Q1

REPORT INFORMATION
  Report Type: Spontaneous
  Country: US (occurrence: US)
  Receive Date: 20180102
  Receipt Date: 20180209
  Transmission Date: 20180509
  Serious: Yes (Other)
  Sender: FDA-Public Use
  Company Number: US-PFIZER INC-2017553983

PATIENT
  Age: 46 Year
  Sex: Female

DRUGS (1)
  1. XELJANZ XR [Suspect]
     Active Substance: TOFACITINIB CITRATE
     Indication: RHEUMATOID ARTHRITIS
     Dosage: 11 MG, UNK

REACTIONS (8)
  - Infected cyst [Recovered/Resolved]
  - Folliculitis [Unknown]
  - Furuncle [Unknown]
  - Cellulitis staphylococcal [Recovered/Resolved]
  - Drug ineffective [Unknown]
  - Constipation [Unknown]
  - Condition aggravated [Not Recovered/Not Resolved]
  - Abdominal distension [Unknown]

NARRATIVE: CASE EVENT DATE: 20171226
